FAERS Safety Report 22138478 (Version 1)
Quarter: 2023Q1

REPORT INFORMATION
  Report Type: Report from Study
  Country: CA (occurrence: CA)
  Receive Date: 20230326
  Receipt Date: 20230326
  Transmission Date: 20230418
  Serious: Yes (Other)
  Sender: FDA-Public Use
  Company Number: CA-UCBSA-2022036944

PATIENT
  Age: 55 Year
  Sex: Female

DRUGS (3)
  1. CERTOLIZUMAB PEGOL [Suspect]
     Active Substance: CERTOLIZUMAB PEGOL
     Indication: Rheumatoid arthritis
     Dosage: 400 MILLIGRAM, EV 2 WEEKS(QOW)
     Route: 058
     Dates: start: 20210306
  2. CERTOLIZUMAB PEGOL [Suspect]
     Active Substance: CERTOLIZUMAB PEGOL
     Dosage: 200 MILLIGRAM, EV 2 WEEKS(QOW)
     Route: 058
  3. METHOTREXATE SODIUM [Concomitant]
     Active Substance: METHOTREXATE SODIUM
     Indication: Product used for unknown indication

REACTIONS (5)
  - Kidney infection [Recovered/Resolved]
  - COVID-19 [Unknown]
  - Animal scratch [Not Recovered/Not Resolved]
  - Blood glucose decreased [Unknown]
  - Intentional dose omission [Unknown]

NARRATIVE: CASE EVENT DATE: 20220601
